FAERS Safety Report 19956095 (Version 1)
Quarter: 2021Q4

REPORT INFORMATION
  Report Type: Other
  Country: NP (occurrence: NP)
  Receive Date: 20211014
  Receipt Date: 20211014
  Transmission Date: 20220303
  Serious: Yes (Hospitalization)
  Sender: FDA-Public Use
  Company Number: NP-ROCHE-2929499

PATIENT
  Age: 17 Year
  Sex: Female

DRUGS (2)
  1. MYCOPHENOLATE MOFETIL [Suspect]
     Active Substance: MYCOPHENOLATE MOFETIL
     Indication: Suicidal ideation
     Dosage: 38 TABLETS OF MMF 500 MG
     Route: 048
  2. PHENOBARBITAL [Suspect]
     Active Substance: PHENOBARBITAL
     Indication: Suicidal ideation
     Dosage: FIVE TABLETS OF PFIVE TABLETS OF PHENOBARBITAL 60 MGHENOBARBITAL 60 MG
     Route: 048

REACTIONS (3)
  - Headache [Recovered/Resolved]
  - Intentional product misuse [Unknown]
  - Intentional overdose [Unknown]
